FAERS Safety Report 7341640-X (Version None)
Quarter: 2011Q1

REPORT INFORMATION
  Report Type: 
  Country: None (occurrence: None)
  Receive Date: 20110309
  Receipt Date: 20110302
  Transmission Date: 20110831
  Serious: Yes (Hospitalization, Other)
  Sender: FDA-Public Use
  Company Number: BR-PFIZER INC-2009303176

PATIENT
  Age: 31 Year
  Sex: Female
  Weight: 48 kg

DRUGS (4)
  1. DEPO-PROVERA [Suspect]
     Indication: CONTRACEPTION
     Dosage: 150 MG, EVERY 3 MONTHS
     Route: 030
     Dates: start: 20100101
  2. VOLTAREN [Concomitant]
  3. KETOPROFEN [Concomitant]
     Dosage: UNK
  4. HERBAL PREPARATION [Concomitant]
     Indication: HAEMORRHOIDS
     Dosage: UNK
     Dates: start: 20090501

REACTIONS (6)
  - HAEMORRHOIDS [None]
  - ANAL ABSCESS [None]
  - AMENORRHOEA [None]
  - GASTROINTESTINAL INFECTION [None]
  - PROCEDURAL COMPLICATION [None]
  - ANAL FISSURE [None]
